FAERS Safety Report 5009653-0 (Version None)
Quarter: 2006Q2

REPORT INFORMATION
  Report Type: 
  Country: None (occurrence: None)
  Receive Date: 20060524
  Receipt Date: 20060510
  Transmission Date: 20061013
  Serious: Yes (Other)
  Sender: FDA-Public Use
  Company Number: US-GLAXOSMITHKLINE-B0424456A

PATIENT
  Sex: Female

DRUGS (2)
  1. PAROXETINE [Suspect]
     Indication: ANTIDEPRESSANT THERAPY
     Route: 065
  2. ESCITALOPRAM OXALATE [Concomitant]
     Indication: ANTIDEPRESSANT THERAPY
     Route: 065

REACTIONS (1)
  - AGGRESSION [None]
